FAERS Safety Report 5316514-6 (Version None)
Quarter: 2007Q2

REPORT INFORMATION
  Report Type: 
  Country: None (occurrence: None)
  Receive Date: 20070430
  Receipt Date: 20070417
  Transmission Date: 20071010
  Serious: Yes (Death, Other)
  Sender: FDA-Public Use
  Company Number: 2007-01139

PATIENT
  Age: 58 Year
  Sex: Male
  Weight: 122 kg

DRUGS (1)
  1. VELCADE [Suspect]
     Indication: MULTIPLE MYELOMA
     Dosage: 2.00 MG, INTRAVENOUS
     Route: 042
     Dates: start: 20061016, end: 20061211

REACTIONS (2)
  - NEOPLASM PROGRESSION [None]
  - PANCYTOPENIA [None]
